FAERS Safety Report 16676981 (Version 1)
Quarter: 2019Q3

REPORT INFORMATION
  Report Type: Spontaneous
  Country: US (occurrence: US)
  Receive Date: 20190621
  Receipt Date: 20190621
  Transmission Date: 20191004
  Serious: No
  Sender: FDA-Public Use
  Company Number: None

PATIENT
  Age: 27 Year
  Sex: Female

DRUGS (1)
  1. HYDROXYPROGESTRONE 250MG/ML (5 ML SDV) [Suspect]
     Active Substance: HYDROXYPROGESTERONE CAPROATE
     Dates: start: 201906

REACTIONS (1)
  - Product use issue [None]

NARRATIVE: CASE EVENT DATE: 20190621
